FAERS Safety Report 8503984-5 (Version None)
Quarter: 2012Q3

REPORT INFORMATION
  Report Type: 
  Country: None (occurrence: None)
  Receive Date: 20120702
  Receipt Date: 20120615
  Transmission Date: 20120928
  Serious: Yes (Other)
  Sender: FDA-Public Use
  Company Number: TCI2012A02968

PATIENT
  Age: 75 Year
  Sex: Female

DRUGS (20)
  1. LANSOPRAZOLE [Suspect]
     Dosage: (1 IN 1 D), PER ORAL
     Route: 048
     Dates: end: 20120607
  2. LOXONIN (LOXOPROFEN SODIUM) [Suspect]
     Dosage: PER ORAL
     Route: 048
  3. ACETAMINOPHEN [Concomitant]
  4. NORVASC [Concomitant]
  5. MAGMITT (MAGNESIUM OXIDE) [Concomitant]
  6. KENEI G ENEMA (GLYCEROL) [Concomitant]
  7. CANDESARTAN CILEXETIL [Concomitant]
  8. URSO 250 [Concomitant]
  9. PURSENID (SENNOSIDE A+B) [Concomitant]
  10. LASIX [Concomitant]
  11. MUCOSTA (REBAMIPIDE) [Concomitant]
  12. LIVACT (AMINO ACIDS NOS) [Concomitant]
  13. GASMOTIN (MOSAPRIDE CITRATE) [Concomitant]
  14. BIO THREE (BACTERIA NOS) [Concomitant]
  15. GLYCYRON (AMINOACETIC ACID, DL-METHIONINE, GLYCYRRHIZIC ACID) [Concomitant]
  16. TRAVELMIN (DIPROPHYLLINE, DIPHENHYDRAMINE SALICYLATE) [Concomitant]
  17. DEXALTIN (DEXAMETHASONE) [Concomitant]
  18. DUROTEP PATCH (FENTANYL) [Concomitant]
  19. SODIUM ALGINATE CALCIUM GLUCONATE INJ [Concomitant]
  20. APHTASEAL (TRIAMCINOLONE ACETONIDE) [Concomitant]

REACTIONS (3)
  - OXYGEN SATURATION DECREASED [None]
  - LYMPHANGIOSIS CARCINOMATOSA [None]
  - LUNG INFILTRATION [None]
